FAERS Safety Report 23525528 (Version 5)
Quarter: 2024Q2

REPORT INFORMATION
  Report Type: Report from Study
  Country: US (occurrence: US)
  Receive Date: 20240215
  Receipt Date: 20240426
  Transmission Date: 20240716
  Serious: Yes (Hospitalization, Other)
  Sender: FDA-Public Use
  Company Number: US-Merck Healthcare KGaA-2023497233

PATIENT
  Sex: Female
  Weight: 84.37 kg

DRUGS (1)
  1. MAVENCLAD [Suspect]
     Active Substance: CLADRIBINE
     Indication: Multiple sclerosis
     Dosage: YEAR ONE THERAPY
     Route: 048
     Dates: start: 20230228, end: 20230401

REACTIONS (11)
  - Cervical polyp [Unknown]
  - Gastrointestinal bacterial infection [Recovering/Resolving]
  - Biliary obstruction [Unknown]
  - Device material issue [Unknown]
  - Abdominal operation [Unknown]
  - Weight decreased [Unknown]
  - Hypophagia [Unknown]
  - Post procedural infection [Unknown]
  - Post procedural haemorrhage [Unknown]
  - Vaginal haemorrhage [Unknown]
  - Malaise [Unknown]
